FAERS Safety Report 7722747-1 (Version None)
Quarter: 2011Q3

REPORT INFORMATION
  Report Type: 
  Country: None (occurrence: None)
  Receive Date: 20110831
  Receipt Date: 20110829
  Transmission Date: 20111222
  Serious: Yes (Death)
  Sender: FDA-Public Use
  Company Number: US-MYLANLABS-2009S1009513

PATIENT
  Age: 47 Year
  Sex: Female
  Weight: 86.18 kg

DRUGS (11)
  1. WARFARIN SODIUM [Concomitant]
  2. CARISOPRODOL [Concomitant]
  3. ACETAMINOPHEN W/ CODEINE [Concomitant]
  4. CHLORHEXIDINE GLUCONATE [Concomitant]
  5. NASONEX [Concomitant]
  6. FENTANYL-100 [Suspect]
     Indication: PAIN
     Dosage: CHANGED Q2D
     Dates: end: 20070704
  7. CLONAZEPAM [Concomitant]
  8. ADVAIR DISKUS 100/50 [Concomitant]
  9. SEROQUEL [Concomitant]
  10. ACETAMINOPHEN AND HYDROCODONE BITARTRATE [Concomitant]
  11. FLUTICASONE PROPIONATE [Concomitant]

REACTIONS (1)
  - TOXICITY TO VARIOUS AGENTS [None]
